FAERS Safety Report 9999515 (Version 1)
Quarter: 2014Q1

REPORT INFORMATION
  Report Type: Spontaneous
  Country: US (occurrence: US)
  Receive Date: 20140312
  Receipt Date: 20140312
  Transmission Date: 20141002
  Serious: No
  Sender: FDA-Public Use
  Company Number: US-TEVA-405301USA

PATIENT
  Sex: Male
  Weight: 72.64 kg

DRUGS (2)
  1. AMOXICILLIN [Suspect]
     Route: 048
  2. MINOCYCLINE [Concomitant]
     Dosage: 100 MILLIGRAM DAILY;
     Route: 061

REACTIONS (1)
  - Hypersensitivity [Unknown]
